FAERS Safety Report 10177495 (Version 1)
Quarter: 2014Q2

REPORT INFORMATION
  Report Type: Spontaneous
  Country: DE (occurrence: DE)
  Receive Date: 20140516
  Receipt Date: 20140516
  Transmission Date: 20141212
  Serious: Yes (Disabling)
  Sender: FDA-Public Use
  Company Number: DE-009507513-1405DEU006278

PATIENT
  Age: 34 Year
  Sex: Female

DRUGS (1)
  1. REMERGIL SOLTAB [Suspect]
     Dosage: UNK
     Route: 048
     Dates: start: 2010

REACTIONS (2)
  - Disability [Not Recovered/Not Resolved]
  - Memory impairment [Unknown]
